FAERS Safety Report 7110876-5 (Version None)
Quarter: 2010Q4

REPORT INFORMATION
  Report Type: 
  Country: None (occurrence: None)
  Receive Date: 20101116
  Receipt Date: 20101116
  Transmission Date: 20110411
  Serious: No
  Sender: FDA-Public Use
  Company Number: None

PATIENT
  Age: 55 Year
  Sex: Female
  Weight: 74.8435 kg

DRUGS (1)
  1. LUMIGAN [Suspect]
     Indication: GLAUCOMA
     Dosage: ONE DROP EACH EYE EVERY NIGHT INTRAOCULAR
     Route: 031
     Dates: start: 20101110, end: 20101113

REACTIONS (3)
  - ABNORMAL SENSATION IN EYE [None]
  - EYE IRRITATION [None]
  - VISION BLURRED [None]
